FAERS Safety Report 6100414-8 (Version None)
Quarter: 2009Q1

REPORT INFORMATION
  Report Type: 
  Country: None (occurrence: None)
  Receive Date: 20090303
  Receipt Date: 20090130
  Transmission Date: 20090719
  Serious: No
  Sender: FDA-Public Use
  Company Number: US-BAYER-200838639NA

PATIENT

DRUGS (1)
  1. EOVIST [Suspect]
     Indication: DRUG USE FOR UNKNOWN INDICATION
     Dosage: TOTAL DAILY DOSE: 10 ML
     Dates: start: 20081107, end: 20081107

REACTIONS (1)
  - PRURITUS [None]
